FAERS Safety Report 13974766 (Version 2)
Quarter: 2017Q3

REPORT INFORMATION
  Report Type: Spontaneous
  Country: CA (occurrence: CA)
  Receive Date: 20170915
  Receipt Date: 20170927
  Transmission Date: 20171128
  Serious: Yes (Hospitalization)
  Sender: FDA-Public Use
  Company Number: CA-HIKMA PHARMACEUTICALS CO. LTD-2017CA012209

PATIENT

DRUGS (2)
  1. METHYLPREDNISOLONE. [Concomitant]
     Active Substance: METHYLPREDNISOLONE
     Dosage: 40 MG, CYCLIC (EVERY 8 WEEKS)
     Route: 065
  2. INFLECTRA [Suspect]
     Active Substance: INFLIXIMAB-DYYB
     Indication: COLITIS ULCERATIVE
     Dosage: 500 MG, CYCLIC, (AT 0,2,6 WEEKS, THEN EVERY 8 WEEKS)
     Route: 042
     Dates: start: 20170614

REACTIONS (1)
  - Drug ineffective [Unknown]

NARRATIVE: CASE EVENT DATE: 20170826
